FAERS Safety Report 13034226 (Version 1)
Quarter: 2016Q4

REPORT INFORMATION
  Report Type: Spontaneous
  Country: US (occurrence: US)
  Receive Date: 20161215
  Receipt Date: 20161215
  Transmission Date: 20170207
  Serious: Yes (Death, Life-Threatening, Hospitalization, Disabling)
  Sender: FDA-Public Use
  Company Number: None

PATIENT
  Age: 39 Year
  Sex: Male
  Weight: 89.2 kg

DRUGS (1)
  1. IMODIUM [Suspect]
     Active Substance: LOPERAMIDE HYDROCHLORIDE
     Indication: ASTHENIA
     Dosage: ?          OTHER FREQUENCY:OVERDOSE;?
     Route: 048

REACTIONS (8)
  - Myocardial infarction [None]
  - Seizure [None]
  - Cardiac arrest [None]
  - Ventricular tachycardia [None]
  - Hypotension [None]
  - Brain injury [None]
  - Brain death [None]
  - Apnoea [None]

NARRATIVE: CASE EVENT DATE: 20161106
